FAERS Safety Report 24528027 (Version 2)
Quarter: 2024Q4

REPORT INFORMATION
  Report Type: Spontaneous
  Country: DE (occurrence: DE)
  Receive Date: 20241021
  Receipt Date: 20241101
  Transmission Date: 20250115
  Serious: Yes (Hospitalization)
  Sender: Haleon PLC
  Company Number: DE-BFARM-24006324

PATIENT
  Age: 71 Year
  Sex: Female
  Weight: 98 kg

DRUGS (18)
  1. IBUPROFEN [Suspect]
     Active Substance: IBUPROFEN
     Indication: Pain
     Dosage: LAST DATE OF ADMINISTRATION: 2024-05
  2. TROSPIUM CHLORIDE [Suspect]
     Active Substance: TROSPIUM CHLORIDE
     Indication: Micturition urgency
     Dosage: LAST ADMINISTRATION DATE: 2024-05; 1 DF 0.5 DAY
  3. BISOPROLOL FUMARATE [Suspect]
     Active Substance: BISOPROLOL FUMARATE
     Indication: Hypertension
     Dosage: LAST DATE OF ADMINISTRATION: 2024-05, 1 DF, QD
  4. ATORVASTATIN [Suspect]
     Active Substance: ATORVASTATIN
     Indication: Blood cholesterol increased
     Dosage: LAST DATE OF ADMINISTRATION: 2024-05, 1 DF, QD
  5. ALBUTEROL SULFATE [Suspect]
     Active Substance: ALBUTEROL SULFATE
     Indication: Asthma
     Dosage: LAST DATE OF ADMINISTRATION: 2024-05
  6. TORSEMIDE [Suspect]
     Active Substance: TORSEMIDE
     Indication: Diuretic therapy
     Dosage: LAST DATE OF ADMINISTRATION: 2024-05, 1 DF, QD
  7. POLYETHYLENE GLYCOL 3350\POTASSIUM CHLORIDE\SODIUM BICARBONATE\SODIUM [Suspect]
     Active Substance: POLYETHYLENE GLYCOL 3350\POTASSIUM CHLORIDE\SODIUM BICARBONATE\SODIUM CHLORIDE
     Indication: Constipation
     Dosage: LAST ADMINISTRATION DATE: 2024-05
  8. LOSARTAN POTASSIUM [Suspect]
     Active Substance: LOSARTAN POTASSIUM
     Indication: Hypertension
     Dosage: 1 DF, QD
  9. PANTOZOL [Suspect]
     Active Substance: PANTOPRAZOLE SODIUM
     Indication: Abdominal discomfort
     Dosage: LAST DATE OF ADMINISTRATION: 2024-05, 1 DF, QD
  10. LEVOTHYROXINE [Suspect]
     Active Substance: LEVOTHYROXINE
     Indication: Thyroid disorder
     Dosage: 1 DF, QD
  11. TRIMIPRAMINE [Suspect]
     Active Substance: TRIMIPRAMINE
     Indication: Sleep disorder
     Dosage: LAST ADMINISTRATION DATE: 2024-05
  12. BECLOMETHASONE DIPROPIONATE\FORMOTEROL FUMARATE [Suspect]
     Active Substance: BECLOMETHASONE DIPROPIONATE\FORMOTEROL FUMARATE
     Indication: Asthma
     Dosage: LAST DATE OF ADMINISTRATION: 2024-05, 1 DF
  13. SPIRIVA RESPIMAT [Suspect]
     Active Substance: TIOTROPIUM BROMIDE
     Indication: Asthma
     Dosage: LAST ADMINISTRATION DATE: 2024-05, 2 DF, QD
  14. TROSPIUM CHLORIDE [Suspect]
     Active Substance: TROSPIUM CHLORIDE
     Indication: Micturition urgency
     Dosage: LAST ADMINISTRATION DATE: 2024-05, 1 DF
  15. LOSARTAN POTASSIUM [Suspect]
     Active Substance: LOSARTAN POTASSIUM
     Indication: Hypertension
     Dosage: LAST DATE OF ADMINISTRATION: 2024-05
  16. PREGABALIN [Suspect]
     Active Substance: PREGABALIN
     Indication: Pain
     Dosage: LAST DATE OF ADMINISTRATION: 2024-05, 1 DF
  17. PREGABALIN [Suspect]
     Active Substance: PREGABALIN
     Indication: Sleep disorder
  18. AMITRIPTYLINE [Suspect]
     Active Substance: AMITRIPTYLINE
     Indication: Pain
     Dosage: LAST ADMINISTRATION DATE: 2024-05

REACTIONS (7)
  - Genital infection viral [Unknown]
  - Oral herpes [Unknown]
  - Pruritus genital [Not Recovered/Not Resolved]
  - Pruritus [Not Recovered/Not Resolved]
  - Blood pressure increased [Unknown]
  - Genital herpes [Unknown]
  - Herpes zoster [Unknown]
